FAERS Safety Report 16940268 (Version 1)
Quarter: 2019Q4

REPORT INFORMATION
  Report Type: Spontaneous
  Country: US (occurrence: US)
  Receive Date: 20190828
  Receipt Date: 20190828
  Transmission Date: 20200122
  Serious: No
  Sender: FDA-Public Use
  Company Number: None

PATIENT
  Age: 54 Year
  Sex: Female

DRUGS (1)
  1. CAPECITABINE TAB 500MG [Suspect]
     Active Substance: CAPECITABINE
     Route: 048
     Dates: start: 20190509

REACTIONS (6)
  - Urticaria [None]
  - Pain in extremity [None]
  - Pruritus [None]
  - Skin discolouration [None]
  - Vasodilatation [None]
  - Erythema [None]

NARRATIVE: CASE EVENT DATE: 20190828
